FAERS Safety Report 17260693 (Version 1)
Quarter: 2020Q1

REPORT INFORMATION
  Report Type: Spontaneous
  Country: FR (occurrence: FR)
  Receive Date: 20200113
  Receipt Date: 20200113
  Transmission Date: 20200409
  Serious: Yes (Other)
  Sender: FDA-Public Use
  Company Number: FR-ROCHE-2520072

PATIENT
  Age: 78 Year
  Sex: Male
  Weight: 74 kg

DRUGS (7)
  1. ATORVASTATINE [ATORVASTATIN] [Concomitant]
     Active Substance: ATORVASTATIN
     Route: 048
  2. XARELTO [Concomitant]
     Active Substance: RIVAROXABAN
     Route: 048
  3. PREGABALINE [Concomitant]
     Active Substance: PREGABALIN
     Route: 048
  4. PANTOPRAZOLE [Concomitant]
     Active Substance: PANTOPRAZOLE
     Route: 048
  5. KARDEGIC [Concomitant]
     Active Substance: ASPIRIN DL-LYSINE
     Route: 048
  6. TECENTRIQ [Suspect]
     Active Substance: ATEZOLIZUMAB
     Indication: SQUAMOUS CELL CARCINOMA OF LUNG
     Route: 041
     Dates: start: 20190715, end: 20191028
  7. NEBIVOLOL. [Concomitant]
     Active Substance: NEBIVOLOL
     Route: 048

REACTIONS (2)
  - Cholestasis [Recovering/Resolving]
  - Hepatocellular injury [Recovering/Resolving]

NARRATIVE: CASE EVENT DATE: 201911
